FAERS Safety Report 5673941-5 (Version None)
Quarter: 2008Q2

REPORT INFORMATION
  Report Type: 
  Country: None (occurrence: None)
  Receive Date: 20080226
  Receipt Date: 20070503
  Transmission Date: 20081010
  Serious: Yes (Other)
  Sender: FDA-Public Use
  Company Number: DSA_29862_2007

PATIENT

DRUGS (1)
  1. VASOTEC [Suspect]
     Dosage: (ORAL)
     Route: 048

REACTIONS (1)
  - ANGIOEDEMA [None]
